FAERS Safety Report 11511274 (Version 1)
Quarter: 2015Q3

REPORT INFORMATION
  Report Type: Spontaneous
  Country: CA (occurrence: CA)
  Receive Date: 20150915
  Receipt Date: 20150915
  Transmission Date: 20151125
  Serious: Yes (Hospitalization)
  Sender: FDA-Public Use
  Company Number: CA-ACTELION-A-NJ2015-123828

PATIENT
  Age: 56 Year
  Sex: Female

DRUGS (9)
  1. VITAMIN B6 [Concomitant]
     Active Substance: PYRIDOXINE HYDROCHLORIDE
  2. METOPROLOL [Concomitant]
     Active Substance: METOPROLOL
  3. DIGOXIN. [Concomitant]
     Active Substance: DIGOXIN
  4. REVATIO [Concomitant]
     Active Substance: SILDENAFIL CITRATE
  5. CARIPUL [Suspect]
     Active Substance: EPOPROSTENOL
     Indication: PULMONARY HYPERTENSION
     Dosage: 4.5 MG, CONT INFUS
     Route: 042
     Dates: start: 20141124
  6. SPIRONOLACTONE. [Concomitant]
     Active Substance: SPIRONOLACTONE
  7. ZAROXOLYN [Concomitant]
     Active Substance: METOLAZONE
  8. POTASSIUM [Concomitant]
     Active Substance: POTASSIUM
  9. LORAZEPAM. [Concomitant]
     Active Substance: LORAZEPAM

REACTIONS (1)
  - Lung transplant [Unknown]

NARRATIVE: CASE EVENT DATE: 20150903
